FAERS Safety Report 5466223-8 (Version None)
Quarter: 2007Q3

REPORT INFORMATION
  Report Type: 
  Country: None (occurrence: None)
  Receive Date: 20070919
  Receipt Date: 20070904
  Transmission Date: 20080115
  Serious: Yes (Other)
  Sender: FDA-Public Use
  Company Number: CQT2-2007-00010

PATIENT
  Age: 61 Year
  Sex: Female

DRUGS (4)
  1. ANAGRELIDE HCL [Suspect]
     Indication: THROMBOCYTOPENIA
     Dosage: 0.5 MG, 2X/DAY: BID, ORAL; 0.75 MG, 2X/DAY: BID, ORAL; 1 MG, 2X/DAY: BID, ORAL
     Route: 048
     Dates: start: 20060417, end: 20060522
  2. ANAGRELIDE HCL [Suspect]
     Indication: THROMBOCYTOPENIA
     Dosage: 0.5 MG, 2X/DAY: BID, ORAL; 0.75 MG, 2X/DAY: BID, ORAL; 1 MG, 2X/DAY: BID, ORAL
     Route: 048
     Dates: start: 20060523, end: 20060712
  3. ANAGRELIDE HCL [Suspect]
     Indication: THROMBOCYTOPENIA
     Dosage: 0.5 MG, 2X/DAY: BID, ORAL; 0.75 MG, 2X/DAY: BID, ORAL; 1 MG, 2X/DAY: BID, ORAL
     Route: 048
     Dates: start: 20060713, end: 20061016
  4. PIPOBROMAN (PIPOBROMAN) [Concomitant]

REACTIONS (2)
  - ASTHENIA [None]
  - MIGRAINE WITH AURA [None]
